FAERS Safety Report 17055880 (Version 3)
Quarter: 2020Q3

REPORT INFORMATION
  Report Type: Spontaneous
  Country: JP (occurrence: JP)
  Receive Date: 20191120
  Receipt Date: 20200805
  Transmission Date: 20201102
  Serious: Yes (Hospitalization)
  Sender: FDA-Public Use
  Company Number: JP-ROCHE-2471478

PATIENT
  Age: 63 Year
  Sex: Female
  Weight: 40 kg

DRUGS (4)
  1. LEVOCARNITINE. [Concomitant]
     Active Substance: LEVOCARNITINE
     Dates: start: 20121225
  2. PALUX [Concomitant]
     Active Substance: ALPROSTADIL
  3. EPOGIN [Concomitant]
     Active Substance: ERYTHROPOIETIN
  4. BONVIVA [Suspect]
     Active Substance: IBANDRONATE SODIUM
     Indication: OSTEOPOROSIS
     Route: 042
     Dates: start: 20160720, end: 20190318

REACTIONS (3)
  - Dental caries [Unknown]
  - Osteonecrosis of jaw [Recovering/Resolving]
  - Abscess jaw [Recovering/Resolving]

NARRATIVE: CASE EVENT DATE: 20190523
